FAERS Safety Report 8335195-0 (Version None)
Quarter: 2012Q2

REPORT INFORMATION
  Report Type: 
  Country: None (occurrence: None)
  Receive Date: 20120503
  Receipt Date: 20120425
  Transmission Date: 20120825
  Serious: Yes (Other)
  Sender: FDA-Public Use
  Company Number: US-CELGENEUS-163-21880-12032588

PATIENT
  Sex: Male

DRUGS (12)
  1. VITAMIN D [Concomitant]
     Dosage: 2000UNIT
     Route: 048
  2. GLYBURIDE [Concomitant]
     Dosage: 1
     Route: 048
  3. HYDROCHLOROTHIAZIDE [Concomitant]
     Route: 065
  4. DEXAMETHASONE [Concomitant]
  5. LOVASTATIN [Concomitant]
     Dosage: 1
     Route: 048
  6. DEXAMETHASONE [Concomitant]
     Dosage: 4 MILLIGRAM
     Route: 048
  7. NIFEDIPINE [Concomitant]
     Dosage: 1
     Route: 048
  8. ASPIRIN [Concomitant]
     Dosage: 325 MILLIGRAM
     Route: 048
  9. TERAZOSIN HCL [Concomitant]
     Dosage: 1
     Route: 048
  10. REVLIMID [Suspect]
     Indication: MULTIPLE MYELOMA
     Dosage: 5 MILLIGRAM
     Route: 048
     Dates: start: 20120101
  11. CLONIDINE [Concomitant]
     Dosage: 2
     Route: 048
  12. FUROSEMIDE [Concomitant]
     Dosage: 40 MILLIGRAM
     Route: 048

REACTIONS (2)
  - BURSITIS [None]
  - ARTHRITIS [None]
